FAERS Safety Report 5928186-8 (Version None)
Quarter: 2008Q4

REPORT INFORMATION
  Report Type: 
  Country: None (occurrence: None)
  Receive Date: 20081023
  Receipt Date: 20081015
  Transmission Date: 20090506
  Serious: Yes (Other)
  Sender: FDA-Public Use
  Company Number: PHHY2008JP19977

PATIENT
  Age: 43 Year
  Sex: Female

DRUGS (6)
  1. TEGRETOL [Suspect]
     Indication: EPILEPSY
     Dosage: 800 MG
     Route: 048
     Dates: start: 20060812
  2. TEGRETOL [Suspect]
     Dosage: 600 MG, QD
     Route: 048
     Dates: start: 20080812
  3. ALEVIATIN [Concomitant]
     Indication: EPILEPSY
     Dosage: 250 MG
     Route: 048
     Dates: start: 20060812
  4. ALEVIATIN [Concomitant]
     Dosage: 200 MG
     Route: 048
  5. DEPAKENE [Concomitant]
     Indication: EPILEPSY
     Dosage: 400 MG
     Route: 048
     Dates: start: 20060812
  6. DEPAKENE [Concomitant]
     Dosage: 600 MG
     Route: 048

REACTIONS (3)
  - BLOOD DISORDER [None]
  - PLATELET COUNT DECREASED [None]
  - WHITE BLOOD CELL COUNT DECREASED [None]
